FAERS Safety Report 4494338-X (Version None)
Quarter: 2004Q4

REPORT INFORMATION
  Report Type: 
  Country: None (occurrence: None)
  Receive Date: 20041102
  Receipt Date: 20041020
  Transmission Date: 20050328
  Serious: Yes (Other)
  Sender: FDA-Public Use
  Company Number: GBS040915541

PATIENT
  Age: 55 Year
  Sex: Female
  Weight: 73 kg

DRUGS (2)
  1. OLANZAPINE [Suspect]
     Dosage: 10 MG DAY
     Route: 048
     Dates: start: 20040401
  2. LITHIUM [Concomitant]

REACTIONS (3)
  - ENDOMETRIAL HYPERTROPHY [None]
  - POSTMENOPAUSAL HAEMORRHAGE [None]
  - UTERINE POLYP [None]
